FAERS Safety Report 7526888-3 (Version None)
Quarter: 2011Q2

REPORT INFORMATION
  Report Type: 
  Country: None (occurrence: None)
  Receive Date: 20110606
  Receipt Date: 20110526
  Transmission Date: 20111010
  Serious: Yes (Death)
  Sender: FDA-Public Use
  Company Number: PHHY2011US24435

PATIENT
  Sex: Male
  Weight: 112 kg

DRUGS (16)
  1. PROCHLORPERAZINE TAB [Concomitant]
     Indication: NAUSEA
     Dosage: 1 DF, Q12H
  2. REMERON [Concomitant]
     Indication: DEPRESSION
     Dosage: WEEKLY FROM DAY1
  3. HYDROCODONE BITARTRATE AND ACETAMINOPHEN [Concomitant]
     Indication: PAIN
     Dosage: 7.5MG/750MG
  4. PROSCAR [Concomitant]
     Indication: BENIGN PROSTATIC HYPERPLASIA
     Dosage: UNK
  5. LOMOTIL [Concomitant]
     Indication: DIARRHOEA
     Dosage: 1 DF, Q12H
  6. LEXAPRO [Concomitant]
     Indication: DEPRESSION
     Dosage: 2.5 MG, UNK
  7. LOPRESSOR [Concomitant]
     Dosage: UNK
  8. LASIX [Concomitant]
     Dosage: 40 MG, UNK
  9. ASPIRIN [Concomitant]
     Dosage: 162 MG, UNK
  10. EXJADE [Suspect]
     Indication: MYELODYSPLASTIC SYNDROME
     Dosage: 2000 MG, QD
     Route: 048
     Dates: start: 20100708, end: 20100728
  11. PEPCID [Concomitant]
     Indication: ABDOMINAL DISCOMFORT
     Dosage: 20 MG, UNK
  12. REVLIMID [Concomitant]
     Dosage: 5 MG, QOD
  13. FENTANYL [Concomitant]
     Indication: ARTHRITIS
     Dosage: EVERY 72 HOURS
  14. NEUPOGEN [Concomitant]
     Indication: ANAEMIA
     Dosage: 300 MG, UNK
     Route: 058
  15. DOXAZOSIN MESYLATE [Concomitant]
     Dosage: UNK
  16. ARANESP [Concomitant]
     Indication: ANAEMIA
     Dosage: 300 MG, UNK
     Route: 058

REACTIONS (1)
  - CARDIO-RESPIRATORY ARREST [None]
